FAERS Safety Report 6151984-5 (Version None)
Quarter: 2009Q2

REPORT INFORMATION
  Report Type: 
  Country: None (occurrence: None)
  Receive Date: 20090409
  Receipt Date: 20090409
  Transmission Date: 20091009
  Serious: Yes (Death)
  Sender: FDA-Public Use
  Company Number: None

PATIENT
  Age: 82 Year
  Sex: Female

DRUGS (2)
  1. ASPIRIN [Suspect]
     Indication: CARDIAC OPERATION
     Dosage: 81 MG BID PO
     Route: 048
  2. PLAVIX [Suspect]
     Indication: CARDIAC OPERATION
     Dosage: 75 MG DAILY PO
     Route: 048

REACTIONS (3)
  - FALL [None]
  - SUBARACHNOID HAEMORRHAGE [None]
  - SUBDURAL HAEMATOMA [None]
